FAERS Safety Report 6062775-8 (Version None)
Quarter: 2009Q1

REPORT INFORMATION
  Report Type: 
  Country: None (occurrence: None)
  Receive Date: 20090203
  Receipt Date: 20090126
  Transmission Date: 20090719
  Serious: No
  Sender: FDA-Public Use
  Company Number: US-JNJFOC-20090106554

PATIENT
  Sex: Female
  Weight: 56.7 kg

DRUGS (1)
  1. FENTANYL TRANSDERMAL SYSTEM [Suspect]
     Indication: MULTIPLE SCLEROSIS
     Dosage: EVERY 48 TO 72 HOURS
     Route: 062

REACTIONS (2)
  - DRUG PRESCRIBING ERROR [None]
  - SOMNOLENCE [None]
